FAERS Safety Report 8304593-3 (Version None)
Quarter: 2012Q2

REPORT INFORMATION
  Report Type: 
  Country: None (occurrence: None)
  Receive Date: 20120423
  Receipt Date: 20120413
  Transmission Date: 20120825
  Serious: Yes (Other)
  Sender: FDA-Public Use
  Company Number: CA-BAYER-2012-024052

PATIENT
  Age: 18 Year
  Sex: Female

DRUGS (3)
  1. IBUPROFEN (ADVIL) [Concomitant]
     Indication: DYSMENORRHOEA
     Dosage: UNK UNK, PRN
  2. YAZ [Suspect]
     Dosage: UNK
     Dates: end: 20120401
  3. MIDOL NIGHT TIME [Concomitant]
     Indication: DYSMENORRHOEA
     Dosage: UNK UNK, PRN

REACTIONS (5)
  - CHEST PAIN [None]
  - DIARRHOEA [None]
  - MUSCULOSKELETAL PAIN [None]
  - UTERINE PAIN [None]
  - PAIN IN EXTREMITY [None]
